FAERS Safety Report 6434587-4 (Version None)
Quarter: 2009Q4

REPORT INFORMATION
  Report Type: 
  Country: None (occurrence: None)
  Receive Date: 20091110
  Receipt Date: 20091103
  Transmission Date: 20100525
  Serious: Yes (Hospitalization)
  Sender: FDA-Public Use
  Company Number: A0814592A

PATIENT
  Sex: Male
  Weight: 103 kg

DRUGS (6)
  1. AVANDIA [Suspect]
     Indication: DIABETES MELLITUS
     Dosage: 2MG TWICE PER DAY
     Route: 048
     Dates: start: 20030101, end: 20070101
  2. COVERSYL [Concomitant]
  3. GLYBURIDE [Concomitant]
  4. ATENOLOL [Concomitant]
  5. ADVAIR DISKUS 100/50 [Concomitant]
  6. ATENOLOL [Concomitant]

REACTIONS (4)
  - CARDIAC ARREST [None]
  - CARDIAC STRESS TEST ABNORMAL [None]
  - CORONARY ARTERY DISEASE [None]
  - CORONARY ARTERY OCCLUSION [None]
